FAERS Safety Report 5706791-1 (Version None)
Quarter: 2008Q2

REPORT INFORMATION
  Report Type: 
  Country: None (occurrence: None)
  Receive Date: 20080415
  Receipt Date: 20080415
  Transmission Date: 20081010
  Serious: Yes (Other)
  Sender: FDA-Public Use
  Company Number: None

PATIENT
  Age: 60 Year
  Sex: Female
  Weight: 84.369 kg

DRUGS (2)
  1. FLUOROURACIL [Suspect]
     Indication: SKIN LESION
     Dosage: SIZE OF NICKEL TWICE DAILY TOP
     Route: 061
     Dates: start: 20080313, end: 20080314
  2. FLUOROURACIL [Suspect]
     Indication: SKIN LESION
     Dosage: SIZE OF NICKEL TWICE DAILY TOP
     Route: 061
     Dates: start: 20080320, end: 20080327

REACTIONS (9)
  - ABDOMINAL PAIN [None]
  - DIARRHOEA [None]
  - DYSPHAGIA [None]
  - LACRIMATION INCREASED [None]
  - MALAISE [None]
  - NAUSEA [None]
  - SCLERAL OEDEMA [None]
  - THROAT TIGHTNESS [None]
  - VOMITING [None]
